FAERS Safety Report 4393608-3 (Version None)
Quarter: 2004Q3

REPORT INFORMATION
  Report Type: 
  Country: None (occurrence: None)
  Receive Date: 20040706
  Receipt Date: 20040706
  Transmission Date: 20050211
  Serious: Yes (Hospitalization)
  Sender: FDA-Public Use
  Company Number: None

PATIENT
  Age: 39 Year
  Sex: Male
  Weight: 80.7403 kg

DRUGS (1)
  1. BACTRIM [Suspect]
     Indication: URINARY TRACT INFECTION
     Dates: start: 20040116, end: 20040123

REACTIONS (1)
  - THROMBOCYTOPENIA [None]
